FAERS Safety Report 9508724 (Version 1)
Quarter: 2013Q3

REPORT INFORMATION
  Report Type: Spontaneous
  Country: FR (occurrence: FR)
  Receive Date: 20130909
  Receipt Date: 20130909
  Transmission Date: 20140515
  Serious: Yes (Hospitalization)
  Sender: FDA-Public Use
  Company Number: FR-ACTELION-A-CH2013-88074

PATIENT
  Age: 66 Year
  Sex: Female

DRUGS (6)
  1. TRACLEER [Suspect]
     Indication: SCLERODERMA ASSOCIATED DIGITAL ULCER
     Dosage: 125 MG, BID
     Route: 048
     Dates: start: 20130430, end: 20130712
  2. TRACLEER [Suspect]
     Dosage: 62.5 MG, BID
     Route: 048
     Dates: start: 201212, end: 20130429
  3. AMLOR [Concomitant]
     Dosage: 5 MG, OD
  4. LEVOTHYROX [Concomitant]
     Dosage: 150 ?G, OD
  5. INIPOMP [Concomitant]
     Dosage: UNK, OD
  6. CHONDROSULF [Concomitant]
     Dosage: UNK
     Dates: start: 2011

REACTIONS (6)
  - Mixed liver injury [Recovering/Resolving]
  - Gamma-glutamyltransferase increased [Recovering/Resolving]
  - Blood alkaline phosphatase increased [Recovering/Resolving]
  - Aspartate aminotransferase increased [Recovering/Resolving]
  - Alanine aminotransferase increased [Recovering/Resolving]
  - Skin ulcer [Unknown]
